FAERS Safety Report 4538624-3 (Version None)
Quarter: 2004Q4

REPORT INFORMATION
  Report Type: 
  Country: None (occurrence: None)
  Receive Date: 20041227
  Receipt Date: 20041206
  Transmission Date: 20050328
  Serious: Yes (Hospitalization)
  Sender: FDA-Public Use
  Company Number: DE-BRISTOL-MYERS SQUIBB COMPANY-12794319

PATIENT
  Age: 60 Year
  Sex: Male

DRUGS (1)
  1. CETUXIMAB [Suspect]
     Indication: SQUAMOUS CELL CARCINOMA
     Dosage: 1ST DOSE 05-APR-01(400MG/M2).LAST ON 18-NOV-04. IMCLONE LOT: 02C00485
     Route: 041
     Dates: start: 20010415, end: 20041118

REACTIONS (1)
  - NEPHROTIC SYNDROME [None]
